FAERS Safety Report 9634035 (Version 1)
Quarter: 2013Q4

REPORT INFORMATION
  Report Type: Spontaneous
  Country: US (occurrence: US)
  Receive Date: 20131021
  Receipt Date: 20131021
  Transmission Date: 20140711
  Serious: No
  Sender: FDA-Public Use
  Company Number: US-009507513-1310USA001593

PATIENT
  Sex: Female

DRUGS (2)
  1. MAXALT [Suspect]
     Indication: MIGRAINE
     Dosage: 10 MG AS NEEDED FOR MIGRAINE, REPEAT ONE TIME 2 HOURS LATER IF NEEDED
     Route: 048
  2. WELLBUTRIN [Concomitant]

REACTIONS (5)
  - Viral infection [Recovered/Resolved]
  - Vomiting [Recovered/Resolved]
  - Vomiting [Recovered/Resolved]
  - Nausea [Recovered/Resolved]
  - Somnolence [Recovered/Resolved]
